FAERS Safety Report 14339718 (Version 2)
Quarter: 2018Q1

REPORT INFORMATION
  Report Type: Spontaneous
  Country: RO (occurrence: RO)
  Receive Date: 20171230
  Receipt Date: 20180129
  Transmission Date: 20180509
  Serious: Yes (Other)
  Sender: FDA-Public Use
  Company Number: PHHY2017RO196361

PATIENT
  Age: 61 Year
  Sex: Male

DRUGS (5)
  1. HARVONI [Suspect]
     Active Substance: LEDIPASVIR\SOFOSBUVIR
     Indication: HEPATIC CIRRHOSIS
     Route: 048
  2. PROPRANOLOL [Concomitant]
     Active Substance: PROPRANOLOL HYDROCHLORIDE
     Indication: PRODUCT USED FOR UNKNOWN INDICATION
     Route: 065
  3. LAGOSA [Concomitant]
     Indication: HEPATIC CIRRHOSIS
     Route: 065
  4. RIBAVIRIN. [Suspect]
     Active Substance: RIBAVIRIN
     Indication: HEPATIC CIRRHOSIS
     Route: 048
     Dates: start: 20170913, end: 20171122
  5. DIUREX [Concomitant]
     Active Substance: AMILORIDE HYDROCHLORIDE\HYDROCHLOROTHIAZIDE
     Indication: OEDEMA
     Route: 065

REACTIONS (6)
  - Anaemia [Not Recovered/Not Resolved]
  - Neutropenia [Recovering/Resolving]
  - Oedema peripheral [Not Recovered/Not Resolved]
  - Cytopenia [Recovering/Resolving]
  - Ascites [Recovering/Resolving]
  - Leukopenia [Recovering/Resolving]
